FAERS Safety Report 11591361 (Version 1)
Quarter: 2015Q4

REPORT INFORMATION
  Report Type: Spontaneous
  Country: US (occurrence: US)
  Receive Date: 20151004
  Receipt Date: 20151004
  Transmission Date: 20160304
  Serious: No
  Sender: FDA-Public Use
  Company Number: US-AMGEN-USASP2015101899

PATIENT
  Age: 73 Year
  Sex: Female

DRUGS (1)
  1. ENBREL [Suspect]
     Active Substance: ETANERCEPT
     Indication: PAIN
     Dosage: 50 MG, QWK
     Route: 065

REACTIONS (9)
  - Hypersensitivity [Unknown]
  - Crying [Unknown]
  - Device issue [Unknown]
  - Fear of death [Unknown]
  - Nervousness [Unknown]
  - Pain [Unknown]
  - Therapeutic response unexpected [Unknown]
  - Fear [Unknown]
  - Off label use [Unknown]

NARRATIVE: CASE EVENT DATE: 20150928
